FAERS Safety Report 5710338-3 (Version None)
Quarter: 2008Q2

REPORT INFORMATION
  Report Type: 
  Country: None (occurrence: None)
  Receive Date: 20080418
  Receipt Date: 20080408
  Transmission Date: 20081010
  Serious: Yes (Hospitalization)
  Sender: FDA-Public Use
  Company Number: FR-PFIZER INC-2008031353

PATIENT
  Age: 28 Year
  Sex: Male

DRUGS (1)
  1. CHAMPIX [Suspect]
     Route: 048
     Dates: start: 20080128, end: 20080201

REACTIONS (3)
  - ABNORMAL DREAMS [None]
  - FRACTURE [None]
  - SOMNAMBULISM [None]
